FAERS Safety Report 7663900-5 (Version None)
Quarter: 2011Q3

REPORT INFORMATION
  Report Type: 
  Country: None (occurrence: None)
  Receive Date: 20110805
  Receipt Date: 20100805
  Transmission Date: 20111222
  Serious: No
  Sender: FDA-Public Use
  Company Number: US-ABBOTT-10P-163-0662241-00

PATIENT
  Sex: Male
  Weight: 108.96 kg

DRUGS (3)
  1. NIASPAN [Suspect]
     Indication: HIGH DENSITY LIPOPROTEIN DECREASED
     Dates: start: 20100401
  2. DIOVAN [Concomitant]
     Indication: HYPERTENSION
  3. PROPECIA [Concomitant]
     Indication: ALOPECIA

REACTIONS (2)
  - BLOOD GLUCOSE INCREASED [None]
  - RESPIRATORY TRACT INFECTION [None]
